FAERS Safety Report 23610544 (Version 3)
Quarter: 2025Q1

REPORT INFORMATION
  Report Type: Spontaneous
  Country: FR (occurrence: FR)
  Receive Date: 20240308
  Receipt Date: 20250103
  Transmission Date: 20250409
  Serious: Yes (Other)
  Sender: JOHNSON AND JOHNSON
  Company Number: FR-JNJFOC-20240283418

PATIENT
  Age: 77 Year
  Sex: Female
  Weight: 70 kg

DRUGS (3)
  1. TECVAYLI [Suspect]
     Active Substance: TECLISTAMAB-CQYV
     Indication: Plasma cell myeloma
     Route: 065
     Dates: start: 20230201
  2. TECVAYLI [Suspect]
     Active Substance: TECLISTAMAB-CQYV
     Route: 065
     Dates: end: 20240209
  3. TECVAYLI [Suspect]
     Active Substance: TECLISTAMAB-CQYV
     Route: 065
     Dates: start: 20231108, end: 20241223

REACTIONS (3)
  - Dementia [Unknown]
  - General physical health deterioration [Unknown]
  - Off label use [Unknown]
